FAERS Safety Report 13582057 (Version 2)
Quarter: 2017Q2

REPORT INFORMATION
  Report Type: Spontaneous
  Country: US (occurrence: US)
  Receive Date: 20170525
  Receipt Date: 20170606
  Transmission Date: 20170830
  Serious: No
  Sender: FDA-Public Use
  Company Number: US-BAXALTA-2017BLT003262

PATIENT
  Age: 45 Year
  Sex: Female

DRUGS (1)
  1. VONVENDI [Suspect]
     Active Substance: VON WILLEBRAND FACTOR (RECOMBINANT)
     Indication: VON WILLEBRAND^S DISEASE
     Dosage: 2750 U, 1ST TEST DOSE
     Route: 042
     Dates: start: 20170417, end: 20170417

REACTIONS (2)
  - Therapy non-responder [Not Recovered/Not Resolved]
  - Product reconstitution quality issue [Not Recovered/Not Resolved]

NARRATIVE: CASE EVENT DATE: 20170417
